FAERS Safety Report 9563543 (Version 1)
Quarter: 2013Q1

REPORT INFORMATION
  Report Type: Spontaneous
  Country: US (occurrence: None)
  Receive Date: 20121227
  Receipt Date: 20121227
  Transmission Date: 20140127
  Serious: No
  Sender: FDA-Public Use
  Company Number: PHEH2011US013177

PATIENT
  Age: 4 Year
  Sex: Male
  Weight: 13.8 kg

DRUGS (2)
  1. EXJADE [Suspect]
     Indication: IRON OVERLOAD
     Dosage: 375 MG ( 125 TO 375 MG), DAILY, ORAL
     Route: 048
     Dates: start: 20100228
  2. EXJADE [Suspect]
     Indication: SERUM FERRITIN INCREASED
     Dosage: 375 MG ( 125 TO 375 MG), DAILY, ORAL
     Route: 048
     Dates: start: 20100228

REACTIONS (1)
  - Serum ferritin increased [None]
